FAERS Safety Report 4365671-7 (Version None)
Quarter: 2004Q2

REPORT INFORMATION
  Report Type: 
  Country: None (occurrence: None)
  Receive Date: 20040520
  Receipt Date: 20040511
  Transmission Date: 20050107
  Serious: Yes (Life-Threatening, Other)
  Sender: FDA-Public Use
  Company Number: JP-JNJFOC-20040301453

PATIENT
  Age: 62 Year
  Sex: Female

DRUGS (16)
  1. RISPERDAL [Suspect]
     Indication: DELUSION
     Dosage: SEE IMAGE
     Route: 048
     Dates: start: 20040212, end: 20040226
  2. RISPERDAL [Suspect]
     Indication: HALLUCINATION
     Dosage: SEE IMAGE
     Route: 048
     Dates: start: 20040212, end: 20040226
  3. RISPERDAL [Suspect]
     Indication: DELUSION
     Dosage: SEE IMAGE
     Route: 048
     Dates: start: 20040227, end: 20040228
  4. RISPERDAL [Suspect]
     Indication: HALLUCINATION
     Dosage: SEE IMAGE
     Route: 048
     Dates: start: 20040227, end: 20040228
  5. NIFEDIPINE [Suspect]
     Indication: CORONARY ARTERY OCCLUSION
     Dosage: 40 MG, IN 1 DAY, ORAL
     Route: 048
     Dates: start: 20040117, end: 20040228
  6. FUROSEMIDE (FUROSEMIDE) UNSPECIFIED [Suspect]
     Indication: CARDIAC FAILURE
     Dosage: 40 MG, IN 1 DAY, ORAL
     Route: 048
     Dates: start: 20040117, end: 20040228
  7. SPIRONOLACTONE [Suspect]
     Indication: CARDIAC FAILURE
     Dosage: 50 MG, IN 1 DAY, ORAL
     Route: 048
     Dates: start: 20040130, end: 20040228
  8. AMINOPHYLLIN [Suspect]
     Indication: DYSPNOEA
     Dosage: 500 MG, IN 1 DAY, INTRAVENOUS DRIP
     Route: 041
     Dates: start: 20040204, end: 20040217
  9. TEICOPLANIN (TEICOPLANIN) UNSPECIFIED [Suspect]
     Indication: PNEUMONIA
     Dosage: 400 MG, IN 1 DAY, INTRAVENOUS DRIP
     Route: 041
     Dates: start: 20040207, end: 20040217
  10. FLUNITRAZEPAM (FLUNITRAZEPAM) UNSPECIFIED [Suspect]
     Indication: INSOMNIA
     Dosage: 1 MG, IN 1 DAY, ORAL
     Route: 048
     Dates: start: 20040213, end: 20040228
  11. BROMHEXINE HYDROCHLORIDE (BROMHEXINE HYDROCHLORIDE) [Concomitant]
  12. AMROXAL HYDROCHLORIDE (AMBROXOL HYDROCHLORIDE) [Concomitant]
  13. PROTEINS, AMINO ACID AND PREPARATION (ALL OTHER THERAPEUTIC PRODUCTS) [Concomitant]
  14. PANTHENOL (PANTHENOL) [Concomitant]
  15. MAGNESIUM OXIDE (MAGNESIUM OXIDE) [Concomitant]
  16. SODIUM PICOSULFATE (SODIUM PICOSULFATE) [Concomitant]

REACTIONS (10)
  - AGRANULOCYTOSIS [None]
  - ANAEMIA [None]
  - ANXIETY [None]
  - BONE MARROW DEPRESSION [None]
  - CONDITION AGGRAVATED [None]
  - DRUG INTERACTION [None]
  - INSOMNIA [None]
  - IRRITABILITY [None]
  - LEUKOPENIA [None]
  - PYREXIA [None]
